FAERS Safety Report 8843065 (Version 6)
Quarter: 2013Q2

REPORT INFORMATION
  Report Type: Spontaneous
  Country: US (occurrence: US)
  Receive Date: 20121016
  Receipt Date: 20130619
  Transmission Date: 20140414
  Serious: Yes (Hospitalization, Other)
  Sender: FDA-Public Use
  Company Number: US-009507513-1210USA005086

PATIENT
  Sex: Female

DRUGS (3)
  1. FOSAMAX [Suspect]
     Indication: OSTEOPOROSIS
     Dosage: 70 MG, QW
     Route: 048
     Dates: start: 199906, end: 2006
  2. FOSAMAX PLUS D [Suspect]
     Indication: OSTEOPOROSIS
     Dosage: 70 MG, QW
     Route: 048
     Dates: start: 2006, end: 2009
  3. ALENDRONATE SODIUM [Suspect]
     Indication: OSTEOPOROSIS
     Dosage: 70 MG, QW
     Route: 048
     Dates: start: 20091023

REACTIONS (39)
  - Femur fracture [Unknown]
  - Intramedullary rod insertion [Unknown]
  - Intramedullary rod insertion [Unknown]
  - Upper limb fracture [Unknown]
  - Renal failure [Unknown]
  - Cholecystectomy [Unknown]
  - Skin graft [Unknown]
  - Burns third degree [Unknown]
  - Cardiac arrest [Unknown]
  - Fall [Unknown]
  - Femur fracture [Unknown]
  - Fall [Unknown]
  - Pain [Unknown]
  - Hypercholesterolaemia [Unknown]
  - Hypokalaemia [Unknown]
  - Fracture [Unknown]
  - Osteoarthritis [Unknown]
  - Aortic arteriosclerosis [Unknown]
  - Lymphoedema [Unknown]
  - Bronchitis [Unknown]
  - Deep vein thrombosis [Unknown]
  - Nephrolithiasis [Unknown]
  - Sinusitis [Unknown]
  - Proteinuria [Unknown]
  - Hysterectomy [Unknown]
  - Salpingo-oophorectomy bilateral [Unknown]
  - Tonsillectomy [Unknown]
  - Appendicectomy [Unknown]
  - Sinus tachycardia [Unknown]
  - Skin graft scar [Not Recovered/Not Resolved]
  - Cardiomegaly [Unknown]
  - Pulmonary congestion [Unknown]
  - Blood glucose abnormal [Unknown]
  - Catheter site pain [Unknown]
  - Haemoglobin abnormal [Recovering/Resolving]
  - Back pain [Not Recovered/Not Resolved]
  - Gastrooesophageal reflux disease [Unknown]
  - Oedema peripheral [Unknown]
  - Pain in extremity [Not Recovered/Not Resolved]
